FAERS Safety Report 7379275-5 (Version None)
Quarter: 2011Q1

REPORT INFORMATION
  Report Type: 
  Country: None (occurrence: None)
  Receive Date: 20110328
  Receipt Date: 20101116
  Transmission Date: 20110831
  Serious: Yes (Hospitalization, Other)
  Sender: FDA-Public Use
  Company Number: US-AMGEN-QUU434302

PATIENT
  Age: 48 Year
  Sex: Female
  Weight: 58 kg

DRUGS (30)
  1. GLIPIZIDE [Concomitant]
     Dosage: 5 MG, QD
  2. POTASSIUM CHLORIDE [Concomitant]
     Dosage: 20 MEQ, QD
  3. NPLATE [Suspect]
     Indication: THROMBOCYTOPENIA
     Dosage: 360 A?G, UNK
     Route: 058
     Dates: start: 20100216, end: 20101112
  4. ASCORBIC ACID [Concomitant]
     Dosage: 500 MG, QD
     Route: 048
  5. GABAPENTIN [Concomitant]
     Dosage: 300 MG, TID
  6. TRIMETHOPRIM + SULFAMETHOXAZOLE [Concomitant]
     Dosage: UNK UNK, 3 TIMES/WK
  7. AZITHROMYCIN [Concomitant]
     Dosage: 600 MG, QWK
  8. MORPHINE SULFATE [Concomitant]
     Dosage: 30 MG, BID
     Route: 048
  9. SIROLIMUS [Concomitant]
     Dosage: 1 MG, QD
  10. ACETAMINOPHEN [Concomitant]
  11. VACCINES [Concomitant]
  12. MULTI-VITAMINS [Concomitant]
  13. POSACONAZOLE [Concomitant]
     Dosage: 200 MG, TID
  14. ACETAMINOPHEN AND OXYCODONE HCL [Concomitant]
  15. BACTRIM [Concomitant]
     Dosage: 1 DF, QOD
  16. TACROLIMUS [Concomitant]
     Dosage: 1 MG, QD
  17. INSULIN [Concomitant]
     Dosage: UNK UNK, PRN
  18. NPLATE [Suspect]
     Dosage: UNK
     Dates: start: 20101112
  19. URSODIOL [Concomitant]
     Dosage: 300 MG, BID
  20. ONDANSETRON HYDROCHLORIDE [Concomitant]
     Dosage: 4 MG, PRN
  21. DASATINIB [Concomitant]
     Dosage: 100 MG, QD
     Dates: start: 20090101
  22. PREDNISONE [Concomitant]
  23. OXYCODONE HCL [Concomitant]
     Dosage: 10 MG, PRN
  24. MAGNESIUM OXIDE [Concomitant]
     Dosage: 400 MG, BID
  25. PERCOCET [Concomitant]
     Dosage: 1 DF, PRN
  26. MYCOPHENOLATE MOFETIL [Concomitant]
     Dosage: 1000 MG, BID
  27. LORAZEPAM [Concomitant]
     Dosage: 1 MG, PRN
  28. ACYCLOVIR [Concomitant]
     Dosage: 400 MG, BID
  29. TRIAMCINOLONE [Concomitant]
     Dosage: .5 %, BID
     Route: 061
  30. DIPHENHYDRAMINE HCL [Concomitant]

REACTIONS (20)
  - NAUSEA [None]
  - FATIGUE [None]
  - ANXIETY [None]
  - BLOOD POTASSIUM INCREASED [None]
  - MUSCULAR WEAKNESS [None]
  - MYOPATHY [None]
  - DECREASED APPETITE [None]
  - ASTHENIA [None]
  - PAIN [None]
  - PETECHIAE [None]
  - PURPURA [None]
  - DEEP VEIN THROMBOSIS [None]
  - HYPOAESTHESIA [None]
  - GRAFT VERSUS HOST DISEASE [None]
  - INSOMNIA [None]
  - OEDEMA PERIPHERAL [None]
  - ACARODERMATITIS [None]
  - PAIN IN EXTREMITY [None]
  - WHEEZING [None]
  - HEPATIC ENZYME INCREASED [None]
